FAERS Safety Report 5884891-3 (Version None)
Quarter: 2008Q3

REPORT INFORMATION
  Report Type: 
  Country: None (occurrence: None)
  Receive Date: 20080916
  Receipt Date: 20080905
  Transmission Date: 20090109
  Serious: Yes (Death)
  Sender: FDA-Public Use
  Company Number: JP-ROCHE-584030

PATIENT
  Sex: Male
  Weight: 130 kg

DRUGS (42)
  1. CELLCEPT [Suspect]
     Route: 048
     Dates: start: 20030528, end: 20070104
  2. CELLCEPT [Suspect]
     Dosage: DOSE INCREASED.
     Route: 048
     Dates: start: 20070105, end: 20070123
  3. CELLCEPT [Suspect]
     Dosage: DOSE DECREASED.
     Route: 048
     Dates: start: 20070124, end: 20070308
  4. PROGRAF [Suspect]
     Dosage: 1MG, 2MG
     Route: 048
     Dates: start: 20061227, end: 20070104
  5. PROGRAF [Suspect]
     Dosage: 2MG, 4MG. DOSE INCREASED.
     Route: 048
     Dates: start: 20070105, end: 20070123
  6. PREDNISOLONE [Concomitant]
     Route: 048
     Dates: start: 20061227, end: 20070104
  7. PREDNISOLONE [Concomitant]
     Route: 048
     Dates: start: 20070105, end: 20070115
  8. PREDNISOLONE [Concomitant]
     Route: 048
     Dates: start: 20070116, end: 20070118
  9. PREDNISOLONE [Concomitant]
     Route: 048
     Dates: start: 20070119, end: 20070121
  10. PREDNISOLONE [Concomitant]
     Route: 048
     Dates: start: 20070122, end: 20070123
  11. ADALAT [Concomitant]
     Route: 048
     Dates: start: 20061227, end: 20070104
  12. ADALAT [Concomitant]
     Route: 048
     Dates: start: 20070105, end: 20070123
  13. BUFFERIN [Concomitant]
     Dosage: DRUG REPORTED AS: BUFFERIN 81MG
     Route: 048
     Dates: start: 20061227, end: 20070104
  14. BUFFERIN [Concomitant]
     Dosage: DRUG REPORTED AS: BUFFERIN 81MG
     Route: 048
     Dates: start: 20070105, end: 20070123
  15. ZYLORIC [Concomitant]
     Route: 048
     Dates: start: 20061227, end: 20070104
  16. ZYLORIC [Concomitant]
     Route: 048
     Dates: start: 20070105, end: 20070123
  17. NIVADIL [Concomitant]
     Route: 048
     Dates: start: 20061227, end: 20070104
  18. NIVADIL [Concomitant]
     Route: 048
     Dates: start: 20070105, end: 20070123
  19. LAC-B [Concomitant]
     Route: 048
     Dates: start: 20061227, end: 20070104
  20. LAC-B [Concomitant]
     Route: 048
     Dates: start: 20070105, end: 20070123
  21. RENIVACE [Concomitant]
     Route: 048
     Dates: start: 20061227, end: 20070104
  22. RENIVACE [Concomitant]
     Route: 048
     Dates: start: 20070105, end: 20070123
  23. BLOPRESS [Concomitant]
     Route: 048
     Dates: start: 20061227, end: 20070104
  24. BLOPRESS [Concomitant]
     Route: 048
     Dates: start: 20070105, end: 20070123
  25. SODIUM FERROUS CITRATE [Concomitant]
     Dosage: REPORTED DRUG NAME: FERROFIEL
     Route: 048
     Dates: start: 20061228, end: 20070104
  26. SODIUM FERROUS CITRATE [Concomitant]
     Dosage: REPORTED DRUG NAME: FERROFIEL
     Route: 048
     Dates: start: 20070105, end: 20070105
  27. SODIUM FERROUS CITRATE [Concomitant]
     Dosage: REPORTED DRUG NAME: FERROFIEL
     Route: 048
     Dates: start: 20070106, end: 20070123
  28. GLUCOBAY [Concomitant]
     Route: 048
     Dates: start: 20061228, end: 20061228
  29. GLUCOBAY [Concomitant]
     Route: 048
     Dates: start: 20061230, end: 20061231
  30. GLUCOBAY [Concomitant]
     Route: 048
     Dates: start: 20070101, end: 20070101
  31. GLUCOBAY [Concomitant]
     Route: 048
     Dates: start: 20070105, end: 20070118
  32. GLUCOBAY [Concomitant]
     Route: 048
     Dates: start: 20070119, end: 20070123
  33. GLUFAST [Concomitant]
     Route: 048
     Dates: start: 20061229, end: 20061229
  34. GLUFAST [Concomitant]
     Route: 048
     Dates: start: 20061230, end: 20061231
  35. GLUFAST [Concomitant]
     Route: 048
     Dates: start: 20070101, end: 20070101
  36. GLUFAST [Concomitant]
     Route: 048
     Dates: start: 20070105, end: 20070118
  37. GLUFAST [Concomitant]
     Route: 048
     Dates: start: 20070119, end: 20070123
  38. ELIETEN [Concomitant]
     Route: 048
     Dates: start: 20070119, end: 20070119
  39. OMEPRAZOLE [Concomitant]
     Route: 048
     Dates: start: 20070119, end: 20070123
  40. SELBEX [Concomitant]
     Route: 048
     Dates: start: 20070119, end: 20070123
  41. NASEA [Concomitant]
     Dosage: DRUG REPORTED AS: NASEA -OD (RAMOSETRON HYDROCHLORIDE)
     Route: 048
     Dates: start: 20070119, end: 20070119
  42. SOLU-MEDROL [Concomitant]
     Route: 042
     Dates: start: 20070123, end: 20070123

REACTIONS (1)
  - MALIGNANT NEOPLASM OF RENAL PELVIS [None]
